FAERS Safety Report 4443055-0 (Version None)
Quarter: 2004Q3

REPORT INFORMATION
  Report Type: 
  Country: None (occurrence: None)
  Receive Date: 20040903
  Receipt Date: 20040628
  Transmission Date: 20050211
  Serious: Yes (Other)
  Sender: FDA-Public Use
  Company Number: 2004UW13437

PATIENT
  Age: 84 Year
  Sex: Female
  Weight: 65.7716 kg

DRUGS (6)
  1. CRESTOR [Suspect]
     Indication: BLOOD CHOLESTEROL INCREASED
     Dosage: 5 MG QOD PO
     Route: 048
     Dates: start: 20030801
  2. FUROSEMIDE [Concomitant]
  3. KLOR-CON [Concomitant]
  4. ASPIRIN [Concomitant]
  5. ULTRAM [Concomitant]
  6. VICODIN [Concomitant]

REACTIONS (4)
  - BACK PAIN [None]
  - BLOOD URINE [None]
  - HAEMATOCHEZIA [None]
  - MUSCULAR WEAKNESS [None]
